FAERS Safety Report 7001768-0 (Version None)
Quarter: 2010Q3

REPORT INFORMATION
  Report Type: 
  Country: None (occurrence: None)
  Receive Date: 20100920
  Receipt Date: 20090805
  Transmission Date: 20110219
  Serious: No
  Sender: FDA-Public Use
  Company Number: US-ASTRAZENECA-2007UW06034

PATIENT
  Age: 38 Year
  Sex: Female
  Weight: 93 kg

DRUGS (38)
  1. SEROQUEL [Suspect]
     Indication: BIPOLAR DISORDER
     Route: 048
     Dates: start: 19970101
  2. SEROQUEL [Suspect]
     Indication: SCHIZOAFFECTIVE DISORDER
     Route: 048
     Dates: start: 19970101
  3. SEROQUEL [Suspect]
     Indication: DEPRESSION
     Route: 048
     Dates: start: 19970101
  4. SEROQUEL [Suspect]
     Route: 048
     Dates: start: 19980616
  5. SEROQUEL [Suspect]
     Route: 048
     Dates: start: 19980616
  6. SEROQUEL [Suspect]
     Route: 048
     Dates: start: 19980616
  7. SEROQUEL [Suspect]
     Route: 048
     Dates: start: 20050323
  8. SEROQUEL [Suspect]
     Route: 048
     Dates: start: 20050323
  9. SEROQUEL [Suspect]
     Route: 048
     Dates: start: 20050323
  10. SEROQUEL [Suspect]
     Route: 048
     Dates: start: 20000501, end: 20080201
  11. SEROQUEL [Suspect]
     Route: 048
     Dates: start: 20000501, end: 20080201
  12. SEROQUEL [Suspect]
     Route: 048
     Dates: start: 20000501, end: 20080201
  13. SEROQUEL [Suspect]
     Route: 048
     Dates: start: 20010430, end: 20080201
  14. SEROQUEL [Suspect]
     Route: 048
     Dates: start: 20010430, end: 20080201
  15. SEROQUEL [Suspect]
     Route: 048
     Dates: start: 20010430, end: 20080201
  16. ZYPREXA [Concomitant]
     Indication: BIPOLAR DISORDER
     Dates: start: 20000101, end: 20070101
  17. ZYPREXA [Concomitant]
     Indication: DEPRESSION
     Dates: start: 20000101, end: 20070101
  18. ZYPREXA [Concomitant]
     Dates: start: 20010101, end: 20080101
  19. ZYPREXA [Concomitant]
     Dates: start: 20010101, end: 20080101
  20. CARBAMAZEPINE [Concomitant]
     Route: 048
     Dates: start: 20010430
  21. CLONAZEPAM [Concomitant]
     Dosage: 0.5 MG - 1 MG
     Route: 048
     Dates: start: 19990907
  22. CLONAZEPAM [Concomitant]
     Route: 048
     Dates: start: 20020501
  23. COGENTIN [Concomitant]
     Dosage: 0.25MG - 2 MG
     Dates: start: 19920328
  24. DEPAKOTE [Concomitant]
     Dates: start: 19960802
  25. DEPAKOTE [Concomitant]
     Dates: start: 20020325
  26. DEPAKOTE [Concomitant]
     Dates: start: 20040101
  27. GLUCOPHAGE [Concomitant]
     Dates: start: 20010522
  28. GLUCOPHAGE [Concomitant]
     Dates: start: 20061205
  29. GLUCOTROL XL [Concomitant]
     Dates: start: 20010522
  30. GLUCOTROL XL [Concomitant]
     Dates: start: 20061206
  31. HALDOL [Concomitant]
     Dosage: 10 MG - 20 MG
     Dates: start: 19920328
  32. NAVANE [Concomitant]
     Dates: start: 19980928
  33. TEGRETOL [Concomitant]
     Dates: start: 19991022
  34. TEGRETOL [Concomitant]
     Dates: start: 19990907
  35. TEMAZEPAM [Concomitant]
     Dates: start: 19960731
  36. TEMAZEPAM [Concomitant]
     Dates: start: 19960330
  37. RISPERDAL [Concomitant]
     Indication: BIPOLAR DISORDER
  38. RISPERDAL [Concomitant]
     Indication: DEPRESSION

REACTIONS (2)
  - OBESITY [None]
  - TYPE 2 DIABETES MELLITUS [None]
